FAERS Safety Report 8185192-3 (Version None)
Quarter: 2012Q1

REPORT INFORMATION
  Report Type: 
  Country: None (occurrence: None)
  Receive Date: 20120305
  Receipt Date: 20120221
  Transmission Date: 20120608
  Serious: Yes (Hospitalization, Other)
  Sender: FDA-Public Use
  Company Number: PHHY2011US59398

PATIENT
  Sex: Male

DRUGS (7)
  1. LACTULOSE [Concomitant]
     Dosage: UNK
     Route: 048
  2. RED BLOOD CELLS [Concomitant]
  3. EXJADE [Suspect]
     Indication: SICKLE CELL ANAEMIA
     Dosage: 2500 MG, DAILY
     Route: 048
     Dates: start: 20060214
  4. DILAUDID [Concomitant]
     Dosage: 4 MG
     Route: 048
  5. FOLIC ACID [Concomitant]
     Dosage: 1 MG, DAILY
  6. METHADONE HCL [Concomitant]
     Dosage: 60 MG, Q8H
     Route: 048
  7. HYDREA [Concomitant]
     Dosage: 1000 MG, DAILY

REACTIONS (24)
  - CARDIOMEGALY [None]
  - SPLENIC CALCIFICATION [None]
  - LYMPHADENOPATHY [None]
  - NEUTROPHIL COUNT INCREASED [None]
  - ACTIVATED PARTIAL THROMBOPLASTIN TIME PROLONGED [None]
  - FIBRIN D DIMER INCREASED [None]
  - BLOOD GLUCOSE INCREASED [None]
  - BLOOD IRON INCREASED [None]
  - SICKLE CELL ANAEMIA WITH CRISIS [None]
  - BACK PAIN [None]
  - EOSINOPHIL COUNT INCREASED [None]
  - SERUM FERRITIN INCREASED [None]
  - WHITE BLOOD CELL COUNT INCREASED [None]
  - LYMPHOCYTE COUNT INCREASED [None]
  - LIPASE INCREASED [None]
  - BLOOD CULTURE POSITIVE [None]
  - ABDOMINAL PAIN UPPER [None]
  - PYREXIA [None]
  - CONSTIPATION [None]
  - BLOOD LACTATE DEHYDROGENASE INCREASED [None]
  - RENAL CYST [None]
  - ASPARTATE AMINOTRANSFERASE INCREASED [None]
  - PAIN IN EXTREMITY [None]
  - BLOOD BILIRUBIN INCREASED [None]
